FAERS Safety Report 21826602 (Version 2)
Quarter: 2023Q1

REPORT INFORMATION
  Report Type: Spontaneous
  Country: US (occurrence: US)
  Receive Date: 20230106
  Receipt Date: 20230119
  Transmission Date: 20230417
  Serious: Yes (Hospitalization, Other)
  Sender: FDA-Public Use
  Company Number: US-002147023-NVSC2023US001572

PATIENT
  Sex: Female
  Weight: 14 kg

DRUGS (63)
  1. KYMRIAH [Suspect]
     Active Substance: TISAGENLECLEUCEL
     Indication: Product used for unknown indication
     Dosage: 3.9X10^6 CAR-POSITIVE VIABLE T CELLS/KG, ONCE/SINGLE
     Route: 042
     Dates: start: 20221208
  2. KEPPRA [Concomitant]
     Active Substance: LEVETIRACETAM
     Indication: Product used for unknown indication
     Dosage: 30 MG/KG, QD (DIVIDED BID, CONTINUE FOR 1 MONTH)
     Route: 065
     Dates: start: 20221221
  3. KEPPRA [Concomitant]
     Active Substance: LEVETIRACETAM
     Dosage: 15 MG/KG, QD X1WK
     Route: 065
  4. KEPPRA [Concomitant]
     Active Substance: LEVETIRACETAM
     Dosage: UNK UNK, BID (220 MG/8.8 ML, 35.2 ML/HR)
     Route: 042
  5. ATIVAN [Concomitant]
     Active Substance: LORAZEPAM
     Indication: Product used for unknown indication
     Dosage: UNK, PRN
     Route: 065
  6. NORVASC [Concomitant]
     Active Substance: AMLODIPINE BESYLATE
     Indication: Product used for unknown indication
     Dosage: 2.5 MG, BID (HOLD FOR BP {90/50)
     Route: 065
     Dates: start: 20230104
  7. NORVASC [Concomitant]
     Active Substance: AMLODIPINE BESYLATE
     Dosage: UNK, BID 2.5 MG/ 2.5 ML
     Route: 048
  8. CORTISOL [Concomitant]
     Active Substance: HYDROCORTISONE
     Indication: Product used for unknown indication
     Dosage: UNK (RANDOM)
     Route: 065
  9. TYLENOL [Concomitant]
     Active Substance: ACETAMINOPHEN
     Indication: Product used for unknown indication
     Dosage: UNK (X 2)
     Route: 042
  10. PROTEIN [Concomitant]
     Active Substance: PROTEIN
     Indication: Product used for unknown indication
     Dosage: 36.5 UNK
     Route: 065
     Dates: end: 20230107
  11. SMOFLIPID [Concomitant]
     Active Substance: FISH OIL\MEDIUM-CHAIN TRIGLYCERIDES\OLIVE OIL\SOYBEAN OIL
     Indication: Product used for unknown indication
     Dosage: 50 G, 6 ML/HR
     Route: 042
     Dates: end: 20230105
  12. BACTRIM [Concomitant]
     Active Substance: SULFAMETHOXAZOLE\TRIMETHOPRIM
     Indication: Product used for unknown indication
     Dosage: UNK UNK, 34 MG/ 4.25 ML BID
     Route: 048
  13. D-VI-SOL [Concomitant]
     Indication: Product used for unknown indication
     Dosage: UNK, QD (25 MCG/ 2.5 ML)
     Route: 048
  14. DOTAREM [Concomitant]
     Active Substance: GADOTERATE MEGLUMINE
     Indication: Product used for unknown indication
     Dosage: 3 ML, ONCE/SINGLE (WHEN INDICATED)
     Route: 042
  15. LASIX [Concomitant]
     Active Substance: FUROSEMIDE
     Indication: Product used for unknown indication
     Dosage: UNK, 10 MG/1 ML, 6 MG/HR ON CALL
     Route: 042
  16. MILK OF MAGNESIA [Concomitant]
     Active Substance: MAGNESIUM HYDROXIDE
     Indication: Constipation
     Dosage: UNK, QD (SUSPENSION, 0.4 GM 5 ML)
     Route: 048
  17. MIRALAX [Concomitant]
     Active Substance: POLYETHYLENE GLYCOL 3350
     Indication: Constipation
     Dosage: UNK, QD, 4 GM/ 1 PKG
     Route: 048
  18. PEPCID [Concomitant]
     Active Substance: FAMOTIDINE
     Indication: Prophylaxis against gastrointestinal ulcer
     Dosage: 7 MG/ 3.5 ML 14 ML/HR Q12H
     Route: 042
  19. POLYSPORIN [Concomitant]
     Active Substance: BACITRACIN ZINC\POLYMYXIN B SULFATE
     Indication: Product used for unknown indication
     Dosage: UNK, ONCE/SINGLE (ONCE INDICATED)
     Route: 061
  20. ZOFRAN [Concomitant]
     Active Substance: ONDANSETRON HYDROCHLORIDE
     Indication: Product used for unknown indication
     Dosage: UNK, Q8H (WHEN INDICATED, 2 MG/ 2 ML 30 ML /HR)
     Route: 042
  21. ZOFRAN [Concomitant]
     Active Substance: ONDANSETRON HYDROCHLORIDE
     Dosage: UNK (ATC)
     Route: 042
  22. DIPHENHYDRAMINE [Concomitant]
     Active Substance: DIPHENHYDRAMINE
     Indication: Hypersensitivity
     Dosage: UNK, 15 MG/ 0.3 ML, 1.2 ML/ HR Q7DAYS
     Route: 042
  23. DIPHENHYDRAMINE [Concomitant]
     Active Substance: DIPHENHYDRAMINE
     Dosage: 14 MG/5.6 ML, Q6H
     Route: 048
  24. INOTUZUMAB OZOGAMICIN [Concomitant]
     Active Substance: INOTUZUMAB OZOGAMICIN
     Indication: Product used for unknown indication
     Dosage: LEUKEMIA DISEASE WAS NOT IN CONTROL WITH KYMRIAH
     Route: 065
     Dates: start: 20221218
  25. INOTUZUMAB OZOGAMICIN [Concomitant]
     Active Substance: INOTUZUMAB OZOGAMICIN
     Dosage: 0.2 MG 0.8 ML 50 ML/HR Q7DAY
     Route: 042
  26. INOTUZUMAB OZOGAMICIN [Concomitant]
     Active Substance: INOTUZUMAB OZOGAMICIN
     Dosage: 0.5 MG/M2 ON DAY1
     Route: 042
  27. INOTUZUMAB OZOGAMICIN [Concomitant]
     Active Substance: INOTUZUMAB OZOGAMICIN
     Dosage: 0.3 MG/M2 ON DAYS 8, 15
     Route: 042
     Dates: start: 20230102
  28. LINEZOLID [Concomitant]
     Active Substance: LINEZOLID
     Indication: Product used for unknown indication
     Dosage: UNK, Q8H 150 ML 75 ML, 75 ML/HR
     Route: 042
  29. MEROPENEM [Concomitant]
     Active Substance: MEROPENEM
     Indication: Product used for unknown indication
     Dosage: UNK 600 MG 30 ML, 60 ML/HR  Q8H
     Route: 065
  30. MICAFUNGIN [Concomitant]
     Active Substance: MICAFUNGIN
     Indication: Product used for unknown indication
     Dosage: UNK, QD, 60 MG/ 60 ML, 60 MG/HR
     Route: 042
  31. MICAFUNGIN [Concomitant]
     Active Substance: MICAFUNGIN
     Dosage: UNK (FOR DOUBLE COVERAGE)
     Route: 065
     Dates: start: 20230104
  32. VORICONAZOLE [Concomitant]
     Active Substance: VORICONAZOLE
     Indication: Product used for unknown indication
     Dosage: UNK, Q12H 140 MG/28 MG, 9.33 ML/HR
     Route: 042
  33. VORICONAZOLE [Concomitant]
     Active Substance: VORICONAZOLE
     Dosage: UNK
     Route: 065
     Dates: start: 20221229
  34. LIDOCAINE [Concomitant]
     Active Substance: LIDOCAINE
     Indication: Product used for unknown indication
     Dosage: UNK, PRN
     Route: 061
  35. LORAZEPAM [Concomitant]
     Active Substance: LORAZEPAM
     Indication: Nausea
     Dosage: 0.3 MG/0.15 ML, Q6H (PRN)
     Route: 042
  36. LORAZEPAM [Concomitant]
     Active Substance: LORAZEPAM
     Indication: Vomiting
  37. POLYETHYLENE GLYCOL 3350 [Concomitant]
     Active Substance: POLYETHYLENE GLYCOL 3350
     Indication: Constipation
     Dosage: 8 GM/ 2 PKG , QD (HOLD FOR DIARRHEA) (PRN)
     Route: 048
  38. ACETAMINOPHEN [Concomitant]
     Active Substance: ACETAMINOPHEN
     Indication: Pyrexia
     Dosage: 100 ML/HR, Q6H
     Route: 042
  39. SALINE [Concomitant]
     Active Substance: SODIUM CHLORIDE
     Indication: Product used for unknown indication
     Dosage: 1 ML (LOCK) (PERIPHERAL)
     Route: 042
  40. HEPARIN SODIUM [Concomitant]
     Active Substance: HEPARIN SODIUM
     Indication: Product used for unknown indication
     Dosage: 30 UNITS/3 ML
     Route: 042
  41. HEPARIN SODIUM [Concomitant]
     Active Substance: HEPARIN SODIUM
     Dosage: 300 UNITS/3 ML
     Route: 042
  42. HYDROCORTISONE [Concomitant]
     Active Substance: HYDROCORTISONE
     Indication: Hypersensitivity
     Dosage: 20 MG/0.4 ML 0 ML/HR
     Route: 042
  43. LACTULOSE [Concomitant]
     Active Substance: LACTULOSE
     Indication: Constipation
     Dosage: 10 GM 15 ML, TID (HOLD FOR DIARRHEA)
     Route: 048
  44. LACTULOSE [Concomitant]
     Active Substance: LACTULOSE
     Dosage: UNK, PRN
     Route: 065
  45. METHYLPREDNISOLONE [Concomitant]
     Active Substance: METHYLPREDNISOLONE
     Indication: Hypersensitivity
     Dosage: 15 MG/1.5 ML 0 ML/HR, ONCE/SINGLE (ONE TIME)
     Route: 042
  46. SENNA [Concomitant]
     Active Substance: SENNA LEAF\SENNOSIDES\SENNOSIDES A AND B
     Indication: Constipation
     Dosage: 4.4 MG 2.5 ML (BEDTIME) (HOLD FOR DIARRHEA)
     Route: 048
  47. VISIPAQUE [Concomitant]
     Active Substance: IODIXANOL
     Indication: Product used for unknown indication
     Dosage: 270 MILLIGRAM PER MILLILITRE (22 ML, ONCE) (INJECTABLE SOLUTION)
     Route: 042
  48. AMLODIPINE [Concomitant]
     Active Substance: AMLODIPINE BESYLATE
     Indication: Product used for unknown indication
     Dosage: 2.5 MG/1 TAB, QD
     Route: 048
  49. POTASSIUM PHOSPHATE [Concomitant]
     Active Substance: POTASSIUM PHOSPHATE
     Indication: Product used for unknown indication
     Dosage: 6.5 MEQ/16.25 ML 4.06 ML/HR, ONCE/SINGLE (ONE TIME)
     Route: 042
  50. SODIUM PHOSPHATE [Concomitant]
     Active Substance: SODIUM PHOSPHATE
     Indication: Product used for unknown indication
     Dosage: 2.5 MEQ/15.63 ML 3.91 ML/HR, ONCE/SINGLE (ONE TIME)
     Route: 042
  51. SODIUM PHOSPHATE [Concomitant]
     Active Substance: SODIUM PHOSPHATE
     Dosage: 2.4 MEQ/15 ML 3.75 ML/HR, ONCE/SINGLE (ONE TIME)
     Route: 042
  52. SODIUM PHOSPHATE [Concomitant]
     Active Substance: SODIUM PHOSPHATE
     Dosage: UNK (NAPHOS RIDERS)
     Route: 065
     Dates: start: 20230105
  53. VANCOMYCIN [Concomitant]
     Active Substance: VANCOMYCIN
     Indication: Product used for unknown indication
     Dosage: 225 MG 45 ML 15 ML/HR, Q6H
     Route: 042
  54. GANCICLOVIR [Concomitant]
     Active Substance: GANCICLOVIR
     Indication: Cytomegalovirus infection
     Dosage: UNK (START DATE-27 DEC)
     Route: 065
     Dates: end: 20230103
  55. GANCICLOVIR [Concomitant]
     Active Substance: GANCICLOVIR
     Indication: Adenovirus infection
  56. DEXAMETHASONE [Concomitant]
     Active Substance: DEXAMETHASONE
     Indication: Product used for unknown indication
     Dosage: 5 MG/M2, BID (ON DAYS 1-4, 11-14)
     Route: 048
  57. VINCRISTINE [Concomitant]
     Active Substance: VINCRISTINE
     Indication: Product used for unknown indication
     Dosage: 1.5 MG/M2 (ON DAYS 1 + 8)
     Route: 042
  58. CYCLOPHOSPHAMIDE [Concomitant]
     Active Substance: CYCLOPHOSPHAMIDE
     Indication: Product used for unknown indication
     Dosage: 6/6 DOSES (START DATE- 18 DEC, STOP DATE- 21 DEC)
     Route: 065
  59. CEFEPIME [Concomitant]
     Active Substance: CEFEPIME HYDROCHLORIDE
     Indication: Product used for unknown indication
     Dosage: UNK (START DATE- 31 DEC)
     Route: 065
     Dates: end: 20230102
  60. VANCOMYCIN [Concomitant]
     Active Substance: VANCOMYCIN
     Indication: Product used for unknown indication
     Dosage: UNK (START DATE- 02 JAN)
     Route: 065
     Dates: end: 20230104
  61. FEBRILE [Concomitant]
     Indication: Product used for unknown indication
     Dosage: UNK (START DATE- 31 DEC)
     Route: 065
  62. MERO [Concomitant]
     Indication: Product used for unknown indication
     Dosage: UNK (START DATE- 02 JAN) (WITH NEGATIVE CULTURES)
     Route: 065
  63. IMMUNOGLOBULIN [Concomitant]
     Indication: Product used for unknown indication
     Dosage: UNK (IVIG) (CHECK Q2WKS)
     Route: 065
     Dates: start: 20221228

REACTIONS (13)
  - Tachycardia [Unknown]
  - Tachypnoea [Unknown]
  - Pain [Unknown]
  - Skin lesion [Unknown]
  - Headache [Unknown]
  - Myalgia [Unknown]
  - Pyrexia [Unknown]
  - Blast cell count increased [Unknown]
  - Hypokalaemia [Unknown]
  - Blood pressure systolic [Unknown]
  - Hyponatraemia [Unknown]
  - White blood cell count increased [Unknown]
  - Hypophosphataemia [Unknown]
